FAERS Safety Report 22068973 (Version 1)
Quarter: 2023Q1

REPORT INFORMATION
  Report Type: Other
  Country: US (occurrence: US)
  Receive Date: 20230307
  Receipt Date: 20230307
  Transmission Date: 20230418
  Serious: No
  Sender: FDA-Public Use
  Company Number: US-GBT-020582

PATIENT
  Age: 41 Year
  Sex: Female

DRUGS (1)
  1. OXBRYTA [Suspect]
     Active Substance: VOXELOTOR
     Indication: Product used for unknown indication

REACTIONS (8)
  - Fatigue [Unknown]
  - Vomiting [Unknown]
  - Diarrhoea [Unknown]
  - Headache [Unknown]
  - Rash [Unknown]
  - Therapy cessation [Unknown]
  - Urticaria [Unknown]
  - Nausea [Unknown]
